FAERS Safety Report 25474718 (Version 1)
Quarter: 2025Q2

REPORT INFORMATION
  Report Type: Report from Study
  Country: US (occurrence: US)
  Receive Date: 20250624
  Receipt Date: 20250624
  Transmission Date: 20250717
  Serious: Yes (Other)
  Sender: ABBVIE
  Company Number: US-ABBVIE-6203518

PATIENT
  Age: 84 Year
  Sex: Male
  Weight: 60 kg

DRUGS (8)
  1. VYALEV [Suspect]
     Active Substance: FOSCARBIDOPA\FOSLEVODOPA
     Indication: Parkinson^s disease
     Route: 058
     Dates: start: 20250124
  2. VYALEV [Suspect]
     Active Substance: FOSCARBIDOPA\FOSLEVODOPA
     Indication: Dyskinesia
     Route: 058
     Dates: start: 20250324
  3. VYALEV [Suspect]
     Active Substance: FOSCARBIDOPA\FOSLEVODOPA
     Indication: On and off phenomenon
     Route: 058
     Dates: start: 20250220
  4. SERTRALINE HYDROCHLORIDE [Concomitant]
     Active Substance: SERTRALINE HYDROCHLORIDE
     Indication: Product used for unknown indication
  5. GLUTATHIONE [Concomitant]
     Active Substance: GLUTATHIONE
     Indication: Product used for unknown indication
  6. CURCUMIN [Concomitant]
     Active Substance: CURCUMIN
     Indication: Product used for unknown indication
  7. SERTRALINE [Concomitant]
     Active Substance: SERTRALINE HYDROCHLORIDE
     Indication: Anxiety
     Route: 048
     Dates: start: 20230830
  8. RIVASTIGMINE [Concomitant]
     Active Substance: RIVASTIGMINE
     Indication: Cognitive disorder
     Dosage: ROUTE-SKIN
     Route: 048
     Dates: start: 20240723

REACTIONS (6)
  - Staphylococcal infection [Recovered/Resolved]
  - Abdominal infection [Recovered/Resolved]
  - Infusion site haemorrhage [Recovered/Resolved]
  - Infusion site cellulitis [Recovered/Resolved]
  - Infusion site abscess [Recovered/Resolved]
  - Infusion site swelling [Not Recovered/Not Resolved]

NARRATIVE: CASE EVENT DATE: 20250101
